FAERS Safety Report 8892817 (Version 1)
Quarter: 2012Q4

REPORT INFORMATION
  Report Type: Spontaneous
  Country: US (occurrence: None)
  Receive Date: 20121031
  Receipt Date: 20121031
  Transmission Date: 20130627
  Serious: Yes (Death)
  Sender: FDA-Public Use
  Company Number: 2012P1061080

PATIENT
  Sex: Female

DRUGS (1)
  1. FENTANYL PATCH [Suspect]
     Dosage: ;PO
     Route: 048

REACTIONS (3)
  - Intentional drug misuse [None]
  - Intestinal obstruction [None]
  - Incorrect route of drug administration [None]
